FAERS Safety Report 5797191-7 (Version None)
Quarter: 2008Q2

REPORT INFORMATION
  Report Type: 
  Country: None (occurrence: None)
  Receive Date: 20080627
  Receipt Date: 20080612
  Transmission Date: 20081010
  Serious: Yes (Other)
  Sender: FDA-Public Use
  Company Number: TNZFR200800094

PATIENT
  Age: 59 Year
  Sex: Female

DRUGS (1)
  1. INNOHEP [Suspect]
     Indication: THROMBOSIS PROPHYLAXIS
     Dosage: (3500 IU, DAILY), SUBCUTANEOUS
     Route: 058
     Dates: start: 20080101, end: 20080101

REACTIONS (4)
  - FEELING COLD [None]
  - HYPERHIDROSIS [None]
  - RESPIRATORY DISORDER [None]
  - TREMOR [None]
